FAERS Safety Report 11138163 (Version 5)
Quarter: 2015Q2

REPORT INFORMATION
  Report Type: Report from Study
  Country: US (occurrence: US)
  Receive Date: 20150526
  Receipt Date: 20150622
  Transmission Date: 20150821
  Serious: Yes (Hospitalization, Other)
  Sender: FDA-Public Use
  Company Number: PHHO2015US009101

PATIENT
  Age: 83 Year
  Sex: Female
  Weight: 89.6 kg

DRUGS (15)
  1. TOPROL XL [Concomitant]
     Active Substance: METOPROLOL SUCCINATE
     Indication: HYPERTENSION
     Dosage: 12.5 MG (25MG AS 1/2 TABLET), QD
     Route: 048
     Dates: start: 20150521
  2. LOSARTAN [Concomitant]
     Active Substance: LOSARTAN
     Indication: CARDIAC FAILURE CHRONIC
     Dosage: 50 MG, QD
     Route: 065
     Dates: start: 20150502
  3. BLINDED LCZ696 [Suspect]
     Active Substance: SACUBITRIL
     Indication: CARDIAC FAILURE CHRONIC
     Dosage: DOUBLE BLIND
     Route: 048
     Dates: start: 20150406, end: 20150515
  4. BLINDED LCZ696 [Suspect]
     Active Substance: SACUBITRIL
     Dosage: DOUBLE BLIND
     Route: 048
     Dates: start: 20150518
  5. LASIX [Suspect]
     Active Substance: FUROSEMIDE
     Indication: CARDIAC FAILURE
     Dosage: 60 MG, QD
     Route: 065
     Dates: start: 20150512
  6. LASIX [Suspect]
     Active Substance: FUROSEMIDE
     Dosage: 40 MG, QD
     Route: 048
     Dates: start: 20150521
  7. BLINDED NO TREATMENT RECEIVED [Suspect]
     Active Substance: UNSPECIFIED INGREDIENT
     Indication: CARDIAC FAILURE CHRONIC
     Dosage: DOUBLE BLIND
     Route: 048
     Dates: start: 20150406, end: 20150515
  8. XARELTO [Concomitant]
     Active Substance: RIVAROXABAN
     Indication: THROMBOSIS PROPHYLAXIS
     Dosage: 50 UG, QD
     Route: 048
     Dates: start: 20150520
  9. NEURONTIN [Suspect]
     Active Substance: GABAPENTIN
     Indication: BACK PAIN
     Dosage: UNK
     Route: 065
     Dates: start: 20150512
  10. DIOVAN [Suspect]
     Active Substance: VALSARTAN
     Indication: CARDIAC FAILURE CHRONIC
     Dosage: DOUBLE BLIND
     Route: 048
     Dates: start: 20150406, end: 20150515
  11. BLINDED NO TREATMENT RECEIVED [Suspect]
     Active Substance: UNSPECIFIED INGREDIENT
     Dosage: DOUBLE BLIND
     Route: 048
     Dates: start: 20150518
  12. METOPROLOL [Concomitant]
     Active Substance: METOPROLOL
     Indication: HYPERTENSION
     Dosage: 25 MG, BID
     Route: 065
     Dates: start: 20011027
  13. DIOVAN [Suspect]
     Active Substance: VALSARTAN
     Dosage: DOUBLE BLIND
     Route: 048
     Dates: start: 20150518
  14. TIZANIDINE (TIZANIDINE) [Suspect]
     Active Substance: TIZANIDINE
     Indication: PAIN
     Dosage: 2 MG, QD
     Route: 065
  15. NEURONTIN [Suspect]
     Active Substance: GABAPENTIN
     Dosage: 30 MG
     Route: 048

REACTIONS (3)
  - Hypotension [Recovered/Resolved]
  - Urinary tract infection enterococcal [Recovering/Resolving]
  - Muscular weakness [Recovering/Resolving]

NARRATIVE: CASE EVENT DATE: 20150515
